FAERS Safety Report 11265063 (Version 1)
Quarter: 2015Q3

REPORT INFORMATION
  Report Type: Spontaneous
  Country: US (occurrence: None)
  Receive Date: 20150710
  Receipt Date: 20150710
  Transmission Date: 20151125
  Serious: No
  Sender: FDA-Public Use
  Company Number: None

PATIENT
  Age: 61 Year
  Sex: Male
  Weight: 108.86 kg

DRUGS (2)
  1. NECODERM PATCH [Concomitant]
  2. NICOTINE. [Suspect]
     Active Substance: NICOTINE

REACTIONS (2)
  - Product adhesion issue [None]
  - Product substitution issue [None]

NARRATIVE: CASE EVENT DATE: 20150603
